FAERS Safety Report 7090487-0 (Version None)
Quarter: 2010Q4

REPORT INFORMATION
  Report Type: 
  Country: None (occurrence: None)
  Receive Date: 20101012
  Receipt Date: 20100507
  Transmission Date: 20110411
  Serious: Yes (Other)
  Sender: FDA-Public Use
  Company Number: 1000011914

PATIENT
  Age: 63 Year
  Sex: Female

DRUGS (4)
  1. LEXAPRO [Suspect]
     Indication: MAJOR DEPRESSION
     Dosage: 20 MG (20 MG,1 IN 1 D),ORAL ; 1.25 MG (1.25 MG,1 IN 1 D),ORAL
     Route: 048
     Dates: start: 20091201, end: 20100219
  2. LEXAPRO [Suspect]
     Indication: MAJOR DEPRESSION
     Dosage: 20 MG (20 MG,1 IN 1 D),ORAL ; 1.25 MG (1.25 MG,1 IN 1 D),ORAL
     Route: 048
     Dates: start: 20090901
  3. ARMOUR THYROID (THYROID) (30 MILLIGRAM, TABLETS) (THYROID) [Concomitant]
  4. LIPITOR [Concomitant]

REACTIONS (8)
  - DEPRESSION [None]
  - HEADACHE [None]
  - LETHARGY [None]
  - MALAISE [None]
  - MENTAL IMPAIRMENT [None]
  - RESTLESSNESS [None]
  - SOMNOLENCE [None]
  - SUICIDAL IDEATION [None]
